FAERS Safety Report 7714996-3 (Version None)
Quarter: 2011Q3

REPORT INFORMATION
  Report Type: 
  Country: None (occurrence: None)
  Receive Date: 20110829
  Receipt Date: 20110608
  Transmission Date: 20111222
  Serious: No
  Sender: FDA-Public Use
  Company Number: US-ASTRAZENECA-2011SE35346

PATIENT
  Age: 57 Year
  Sex: Male

DRUGS (1)
  1. VIMOVO [Suspect]
     Dosage: 500 MG/20 MG TWO TIMES A DAY
     Route: 048
     Dates: start: 20110510, end: 20110606

REACTIONS (1)
  - BLISTER [None]
